FAERS Safety Report 10168241 (Version 2)
Quarter: 2015Q1

REPORT INFORMATION
  Report Type: Report from Study
  Country: US (occurrence: US)
  Receive Date: 20140512
  Receipt Date: 20140512
  Transmission Date: 20150720
  Serious: Yes (Life-Threatening, Hospitalization)
  Sender: FDA-Public Use
  Company Number: US-MYLANLABS-2014S1010381

PATIENT
  Age: 36 Year
  Sex: Female

DRUGS (8)
  1. PROPRANOLOL [Suspect]
     Active Substance: PROPRANOLOL\PROPRANOLOL HYDROCHLORIDE
     Dosage: UNKNOWN AMOUNT
     Route: 048
  2. FAT EMULSION NOS [Suspect]
     Active Substance: EGG PHOSPHOLIPIDS\SAFFLOWER OIL\SOYBEAN OIL
     Indication: CARDIAC ARREST
     Dosage: 20% 0.23 ML/KG/MIN FOR 1H
     Route: 041
  3. SODIUM BICARBONATE. [Concomitant]
     Active Substance: SODIUM BICARBONATE
     Indication: CARDIAC ARREST
     Route: 065
  4. FAT EMULSION NOS [Suspect]
     Active Substance: EGG PHOSPHOLIPIDS\SAFFLOWER OIL\SOYBEAN OIL
     Indication: CARDIAC ARREST
     Dosage: 20% 0.42 ML/KG; THEN 0.23 ML/KG/MIN
     Route: 040
  5. VERAPAMIL [Suspect]
     Active Substance: VERAPAMIL HYDROCHLORIDE
     Dosage: UNKNOWN AMOUNT
     Route: 048
  6. EPINEPHRINE. [Concomitant]
     Active Substance: EPINEPHRINE
     Indication: CARDIAC ARREST
     Dosage: 0.768 MG/H INFUSION
     Route: 050
  7. ACETYLCYSTEINE. [Concomitant]
     Active Substance: ACETYLCYSTEINE
     Indication: HEPATIC ENZYME INCREASED
     Route: 065
  8. EPINEPHRINE. [Concomitant]
     Active Substance: EPINEPHRINE
     Indication: CARDIAC ARREST
     Dosage: 0.896 MG/H INFUSION; DECREASED TO 0.768 MG/H
     Route: 050

REACTIONS (4)
  - Hypotension [Recovered/Resolved]
  - Cardiac arrest [Recovered/Resolved]
  - Acute respiratory distress syndrome [Recovered/Resolved]
  - Postresuscitation encephalopathy [Recovered/Resolved]
